FAERS Safety Report 14363312 (Version 3)
Quarter: 2018Q1

REPORT INFORMATION
  Report Type: Spontaneous
  Country: FR (occurrence: FR)
  Receive Date: 20180108
  Receipt Date: 20180320
  Transmission Date: 20180509
  Serious: Yes (Other)
  Sender: FDA-Public Use
  Company Number: FR-BAYER-2017-251356

PATIENT
  Age: 61 Year
  Sex: Male
  Weight: 93 kg

DRUGS (6)
  1. CABAZITAXEL [Suspect]
     Active Substance: CABAZITAXEL
     Indication: PROSTATE CANCER METASTATIC
     Dosage: UNK
     Route: 065
  2. DECAPEPTYL [GONADORELIN] [Suspect]
     Active Substance: GONADORELIN
     Indication: PROSTATE CANCER METASTATIC
     Dosage: 11.25 MG, Q3MON
     Route: 030
     Dates: start: 201209
  3. DECTANCYL [Suspect]
     Active Substance: DEXAMETHASONE
     Indication: PROSTATE CANCER METASTATIC
     Dosage: 0.5 MG, QD
     Route: 048
     Dates: start: 201502
  4. XOFIGO [Suspect]
     Active Substance: RADIUM RA-223 DICHLORIDE
     Indication: PROSTATE CANCER METASTATIC
     Dosage: 100 KBQ/ML CYCLICAL
     Route: 042
     Dates: start: 201612, end: 20170502
  5. XGEVA [Suspect]
     Active Substance: DENOSUMAB
     Indication: PROSTATE CANCER METASTATIC
     Dosage: 120 MG, Q1MON
     Route: 058
     Dates: start: 201309
  6. XTANDI [Suspect]
     Active Substance: ENZALUTAMIDE
     Indication: PROSTATE CANCER METASTATIC
     Dosage: 160 MG, QD (4 DF, QD)
     Route: 048
     Dates: start: 201601

REACTIONS (6)
  - Pigmentary glaucoma [Unknown]
  - Cyclitis [Recovered/Resolved]
  - Metastatic neoplasm [Unknown]
  - Hyphaema [Recovered/Resolved]
  - Central nervous system lesion [Unknown]
  - Vision blurred [Recovering/Resolving]

NARRATIVE: CASE EVENT DATE: 201604
